FAERS Safety Report 8559533 (Version 5)
Quarter: 2013Q4

REPORT INFORMATION
  Report Type: Spontaneous
  Country: US (occurrence: US)
  Receive Date: 20120514
  Receipt Date: 20131125
  Transmission Date: 20140711
  Serious: Yes (Hospitalization, Other)
  Sender: FDA-Public Use
  Company Number: US-PFIZER INC-2012113318

PATIENT
  Age: 63 Year
  Sex: Female
  Weight: 84.81 kg

DRUGS (16)
  1. LYRICA [Suspect]
     Indication: FIBROMYALGIA
     Dosage: 75 MG, 3X/DAY
     Route: 048
  2. XANAX [Suspect]
     Indication: ANXIETY
     Dosage: 0.25 MG, TAKE 1 TABLET AS NEEDED
     Route: 048
  3. EXCEDRIN TENSION HEADACHE [Concomitant]
     Indication: HEADACHE
     Dosage: 65-500MG, AS NEEDED
     Route: 048
  4. LODINE [Concomitant]
     Dosage: 200 MG, 2X/DAY
     Route: 048
  5. VOLTAREN [Concomitant]
     Dosage: UNK (1%), 3X/DAY
     Route: 061
  6. ZOCOR [Concomitant]
     Dosage: 40 MG, DAILY
     Route: 048
  7. AMBIEN [Concomitant]
     Dosage: 10 MG, DAILY (AT BEDTIME)
     Route: 048
  8. ZANTAC [Concomitant]
     Dosage: 150 MG, 2X/DAY
     Route: 048
  9. ZOSTAVAX [Concomitant]
     Indication: IMMUNISATION
     Dosage: 19,400 UNIT, AS DIRECTED
     Route: 058
  10. TOFRANIL [Concomitant]
     Dosage: 150 MG, AT BEDTIME
     Route: 048
  11. RESTASIS [Concomitant]
     Dosage: UNK (0.05%), AS DIRECTED
     Route: 047
  12. ADDERALL [Concomitant]
     Dosage: 5 MG, 2X/DAY
     Route: 048
  13. VESICARE [Concomitant]
     Dosage: 10 MG, DAILY
     Route: 048
  14. VESICARE [Concomitant]
     Dosage: 5 MG, DAILY
     Route: 048
  15. IMITREX [Concomitant]
     Indication: MIGRAINE
     Dosage: 0.5 ML, AS NEEDED (MAY REPEAT AFTER 1 HOUR NOT TO BE EXCEEDED 12 MG IN 24 HOURS)
     Route: 058
  16. BAYER CHILDREN^S ASPIRIN [Concomitant]
     Dosage: 81 MG, 1X/DAY ( 1 A DAY)
     Route: 048

REACTIONS (10)
  - Arthropathy [Unknown]
  - Hyperlipidaemia [Unknown]
  - Genital disorder female [Unknown]
  - Osteoarthritis [Unknown]
  - Myositis [Unknown]
  - Myalgia [Unknown]
  - Blood glucose increased [Unknown]
  - Gastrooesophageal reflux disease [Unknown]
  - Obesity [Unknown]
  - Back disorder [Unknown]
